FAERS Safety Report 6736932-9 (Version None)
Quarter: 2010Q2

REPORT INFORMATION
  Report Type: 
  Country: None (occurrence: None)
  Receive Date: 20100521
  Receipt Date: 20100512
  Transmission Date: 20101027
  Serious: Yes (Other)
  Sender: FDA-Public Use
  Company Number: US-GENENTECH-301814

PATIENT
  Sex: Female
  Weight: 92.3 kg

DRUGS (21)
  1. XOLAIR [Suspect]
     Indication: ASTHMA
     Dosage: UNK
     Route: 058
     Dates: start: 20100319
  2. XOLAIR [Suspect]
     Dosage: UNK
     Dates: start: 20100511
  3. FLONASE [Concomitant]
     Indication: DRUG USE FOR UNKNOWN INDICATION
  4. PREDNISONE [Concomitant]
     Indication: DRUG USE FOR UNKNOWN INDICATION
  5. PULMICORT [Concomitant]
     Indication: DRUG USE FOR UNKNOWN INDICATION
  6. SYMBICORT [Concomitant]
     Indication: DRUG USE FOR UNKNOWN INDICATION
  7. VENTOLIN [Concomitant]
     Indication: DRUG USE FOR UNKNOWN INDICATION
  8. XOPENEX [Concomitant]
     Indication: DRUG USE FOR UNKNOWN INDICATION
  9. XYZAL [Concomitant]
     Indication: DRUG USE FOR UNKNOWN INDICATION
  10. ZYFLO [Concomitant]
     Indication: DRUG USE FOR UNKNOWN INDICATION
  11. PATANASE [Concomitant]
     Indication: DRUG USE FOR UNKNOWN INDICATION
  12. COZAAR [Concomitant]
     Indication: DRUG USE FOR UNKNOWN INDICATION
  13. NORVASC [Concomitant]
     Indication: DRUG USE FOR UNKNOWN INDICATION
  14. HYDROCHLOROTHIAZIDE [Concomitant]
     Indication: DRUG USE FOR UNKNOWN INDICATION
  15. MESTINON [Concomitant]
     Indication: DRUG USE FOR UNKNOWN INDICATION
  16. PROTONIX [Concomitant]
     Indication: DRUG USE FOR UNKNOWN INDICATION
  17. MENEST [Concomitant]
     Indication: DRUG USE FOR UNKNOWN INDICATION
  18. PAXIL [Concomitant]
     Indication: DRUG USE FOR UNKNOWN INDICATION
  19. VITAMIN D [Concomitant]
     Indication: DRUG USE FOR UNKNOWN INDICATION
  20. MULTI-VITAMIN [Concomitant]
     Indication: DRUG USE FOR UNKNOWN INDICATION
  21. LOVAZA [Concomitant]
     Indication: DRUG USE FOR UNKNOWN INDICATION

REACTIONS (3)
  - DYSPNOEA [None]
  - THROAT TIGHTNESS [None]
  - URTICARIA [None]
